FAERS Safety Report 4959084-4 (Version None)
Quarter: 2006Q1

REPORT INFORMATION
  Report Type: 
  Country: None (occurrence: None)
  Receive Date: 20060330
  Receipt Date: 20060330
  Transmission Date: 20060701
  Serious: Yes (Hospitalization)
  Sender: FDA-Public Use
  Company Number: None

PATIENT
  Age: 61 Year
  Sex: Female
  Weight: 107 kg

DRUGS (1)
  1. CRESTOR [Suspect]
     Indication: HYPERCHOLESTEROLAEMIA
     Dosage: 10MG QHS PO
     Route: 048
     Dates: start: 20060201, end: 20060301

REACTIONS (9)
  - ANOREXIA [None]
  - BODY TEMPERATURE INCREASED [None]
  - CONFUSIONAL STATE [None]
  - FALL [None]
  - FATIGUE [None]
  - HEAD INJURY [None]
  - HEART RATE INCREASED [None]
  - HYPOXIA [None]
  - RHABDOMYOLYSIS [None]
